FAERS Safety Report 5191304-6 (Version None)
Quarter: 2006Q4

REPORT INFORMATION
  Report Type: 
  Country: None (occurrence: None)
  Receive Date: 20061219
  Receipt Date: 20061211
  Transmission Date: 20070319
  Serious: Yes (Hospitalization, Disabling)
  Sender: FDA-Public Use
  Company Number: 2006PV026714

PATIENT
  Age: 62 Year
  Sex: Male
  Weight: 113.3993 kg

DRUGS (8)
  1. BYETTA [Suspect]
     Indication: DIABETES MELLITUS NON-INSULIN-DEPENDENT
     Dosage: 10 MCG, BID; SC; 5 MCG, BID; SC
     Route: 058
     Dates: start: 20060918, end: 20061018
  2. BYETTA [Suspect]
     Indication: DIABETES MELLITUS NON-INSULIN-DEPENDENT
     Dosage: 10 MCG, BID; SC; 5 MCG, BID; SC
     Route: 058
     Dates: start: 20061018, end: 20061105
  3. NORVASC [Concomitant]
  4. METFORMIN HCL [Concomitant]
  5. GLYBURIDE [Concomitant]
  6. ENALAPRIL MALEATE [Concomitant]
  7. TRIAMTERENE [Concomitant]
  8. ZOCOR [Concomitant]

REACTIONS (5)
  - BLOOD PRESSURE INCREASED [None]
  - CEREBRAL THROMBOSIS [None]
  - CEREBROVASCULAR ACCIDENT [None]
  - THERAPEUTIC RESPONSE UNEXPECTED [None]
  - WEIGHT DECREASED [None]
